FAERS Safety Report 5130244-5 (Version None)
Quarter: 2006Q3

REPORT INFORMATION
  Report Type: 
  Country: None (occurrence: None)
  Receive Date: 20060921
  Receipt Date: 20060921
  Transmission Date: 20061208
  Serious: No
  Sender: FDA-Public Use
  Company Number: None

PATIENT
  Age: 52 Year
  Sex: Male

DRUGS (1)
  1. CELLCEPT [Suspect]
     Indication: PANCREATIC CARCINOMA
     Dosage: 2500 MG BID TWICE DAILY BID PO
     Route: 048
     Dates: start: 20060908, end: 20060915

REACTIONS (1)
  - FATIGUE [None]
